FAERS Safety Report 10039434 (Version 1)
Quarter: 2014Q1

REPORT INFORMATION
  Report Type: Spontaneous
  Country: US (occurrence: US)
  Receive Date: 20140326
  Receipt Date: 20140326
  Transmission Date: 20141002
  Serious: Yes (Other)
  Sender: FDA-Public Use
  Company Number: US-BAYER-2014-041100

PATIENT
  Age: 22 Year
  Sex: Female
  Weight: 54 kg

DRUGS (2)
  1. ALKA-SELTZER PLUS SEVERE COLD + FLU FORMULA [Suspect]
     Indication: NASOPHARYNGITIS
     Dosage: 2 DF, ONCE
     Route: 048
     Dates: start: 20140316, end: 20140316
  2. BAYER GENUINE ASPIRIN ORIGINAL STRENGTH [Suspect]
     Indication: PYREXIA
     Dosage: 1/2 DF, ONCE
     Route: 048
     Dates: start: 1994, end: 1994

REACTIONS (9)
  - Swelling face [Recovered/Resolved]
  - Localised oedema [Recovered/Resolved]
  - Hypoaesthesia [Recovered/Resolved]
  - Erythema [Recovered/Resolved]
  - Localised oedema [Recovered/Resolved]
  - Pruritus [Recovered/Resolved]
  - Wrong technique in drug usage process [None]
  - Drug administered to patient of inappropriate age [None]
  - Hypersensitivity [Recovered/Resolved]
